FAERS Safety Report 20219506 (Version 1)
Quarter: 2021Q4

REPORT INFORMATION
  Report Type: Spontaneous
  Country: US (occurrence: None)
  Receive Date: 20211222
  Receipt Date: 20211222
  Transmission Date: 20220303
  Serious: Yes (Other)
  Sender: FDA-Public Use
  Company Number: None

PATIENT
  Age: 34 Year
  Sex: Female
  Weight: 70.3 kg

DRUGS (2)
  1. BAMLANIVIMAB [Suspect]
     Active Substance: BAMLANIVIMAB
     Indication: COVID-19
     Dosage: FREQUENCY : ONCE;?
     Route: 042
     Dates: start: 20211221, end: 20211221
  2. ETESEVIMAB [Suspect]
     Active Substance: ETESEVIMAB
     Dates: start: 20211221, end: 20211221

REACTIONS (11)
  - Nausea [None]
  - Hypoaesthesia oral [None]
  - Paraesthesia oral [None]
  - Lip swelling [None]
  - Chest discomfort [None]
  - Fatigue [None]
  - Paraesthesia [None]
  - Infusion related reaction [None]
  - Hypersensitivity [None]
  - Abortion spontaneous [None]
  - Exposure during pregnancy [None]

NARRATIVE: CASE EVENT DATE: 20211221
